FAERS Safety Report 9820456 (Version 3)
Quarter: 2014Q1

REPORT INFORMATION
  Report Type: Spontaneous
  Country: US (occurrence: None)
  Receive Date: 20131028
  Receipt Date: 20140115
  Transmission Date: 20141002
  Serious: Yes (Other)
  Sender: FDA-Public Use
  Company Number: 2013US001677

PATIENT
  Age: 68 Year
  Sex: Female
  Weight: 66 kg

DRUGS (9)
  1. ICLUSIG [Suspect]
     Indication: CHRONIC MYELOID LEUKAEMIA
     Route: 048
     Dates: start: 20130515
  2. CARVEDILOL (CARVEDILOL) [Concomitant]
  3. NORVASC (AMLODIPINE BESILATE) [Concomitant]
  4. ENALAPRIL (ENALAPRIL) [Concomitant]
  5. VITAMIN D (VITAMIN D) [Concomitant]
  6. CALTRATE + D (CALCIUM CARBONATE, COLECALCIFEROL) [Concomitant]
  7. CENTRUM SILVER (ASCORBIC ACID, CALCIUM, MINERALS NOS, RETINOL, TOCOPHERYL ACETATE, VITAMIN B NOS, VITAMINS NOS, ZINC) [Concomitant]
  8. STOOL SOFTENER (DOCUSATE SODIUM) [Concomitant]
  9. MIRALAX (MACROGOL) [Concomitant]

REACTIONS (1)
  - Platelet count decreased [None]
